FAERS Safety Report 8293525 (Version 2)
Quarter: 2012Q4

REPORT INFORMATION
  Report Type: 
  Country: US (occurrence: US)
  Receive Date: 20111215
  Receipt Date: 20121023
  Transmission Date: 20130627
  Serious: Yes (Life-Threatening, Other)
  Sender: FDA-Public Use
  Company Number: US-RB-034909-11

PATIENT
  Age: 0 Year
  Sex: Male

DRUGS (4)
  1. SUBOXONE TABLET [Suspect]
     Indication: DRUG DEPENDENCE
     Dosage: 16 mg daily
     Route: 064
     Dates: start: 20110122, end: 20110322
  2. SUBUTEX [Suspect]
     Dosage: 14-16 mg daily
     Route: 064
     Dates: start: 201103, end: 20111121
  3. SUBUTEX [Suspect]
     Indication: DRUG DEPENDENCE
     Dosage: 2 mg twice daily
     Route: 063
     Dates: start: 20111121, end: 20111123
  4. NICOTINE [Suspect]
     Indication: TOBACCO USER
     Dosage: Reports smoking 3 ppd during pregnancy
     Route: 064

REACTIONS (6)
  - Jaundice neonatal [Recovered/Resolved]
  - Stool analysis abnormal [Recovered/Resolved]
  - Exposure during breast feeding [Recovered/Resolved]
  - Foetal exposure during pregnancy [Recovered/Resolved]
  - Maternal drugs affecting foetus [None]
  - Foetal exposure during pregnancy [None]
